FAERS Safety Report 20682464 (Version 11)
Quarter: 2024Q4

REPORT INFORMATION
  Report Type: Report from Study
  Country: JP (occurrence: JP)
  Receive Date: 20220407
  Receipt Date: 20241213
  Transmission Date: 20250115
  Serious: Yes (Hospitalization)
  Sender: ROCHE
  Company Number: JP-CHUGAI-2022011271

PATIENT
  Age: 56 Year
  Sex: Female
  Weight: 53 kg

DRUGS (21)
  1. ENSPRYNG [Suspect]
     Active Substance: SATRALIZUMAB-MWGE
     Indication: Neuromyelitis optica spectrum disorder
     Route: 058
     Dates: start: 20201015, end: 20201112
  2. ENSPRYNG [Suspect]
     Active Substance: SATRALIZUMAB-MWGE
     Route: 058
     Dates: start: 20201210, end: 20220317
  3. PREDNISOLONE [Suspect]
     Active Substance: PREDNISOLONE
     Indication: Neuromyelitis optica spectrum disorder
     Dosage: 15 MILLIGRAM/DAY
     Route: 048
     Dates: start: 20191218, end: 20201014
  4. PREDNISOLONE [Suspect]
     Active Substance: PREDNISOLONE
     Dosage: 12.5 MILLIGRAM/DAY
     Route: 048
     Dates: start: 20201015, end: 20210112
  5. PREDNISOLONE [Suspect]
     Active Substance: PREDNISOLONE
     Dosage: 12 MILLIGRAM/DAY
     Route: 048
     Dates: start: 20210113, end: 20210307
  6. PREDNISOLONE [Suspect]
     Active Substance: PREDNISOLONE
     Dosage: 11 MILLIGRAM/DAY
     Route: 048
     Dates: start: 20210308, end: 20210331
  7. PREDNISOLONE [Suspect]
     Active Substance: PREDNISOLONE
     Dosage: 10 MILLIGRAM/DAY
     Route: 048
     Dates: start: 20210401, end: 20210426
  8. PREDNISOLONE [Suspect]
     Active Substance: PREDNISOLONE
     Dosage: 05 MILLIGRAM/DAY
     Route: 048
     Dates: end: 20220512
  9. PREDNISOLONE [Suspect]
     Active Substance: PREDNISOLONE
     Dosage: 05 MILLIGRAM/DAY
     Route: 048
     Dates: end: 20191217
  10. PREDNISOLONE [Suspect]
     Active Substance: PREDNISOLONE
     Route: 048
     Dates: start: 20210427, end: 20210524
  11. PREDNISOLONE [Suspect]
     Active Substance: PREDNISOLONE
     Route: 048
     Dates: start: 20210525, end: 20210623
  12. PREDNISOLONE [Suspect]
     Active Substance: PREDNISOLONE
     Route: 048
     Dates: start: 20210624, end: 20210728
  13. PREDNISOLONE [Suspect]
     Active Substance: PREDNISOLONE
     Route: 048
     Dates: start: 20210729, end: 20210921
  14. PREDNISOLONE [Suspect]
     Active Substance: PREDNISOLONE
     Route: 048
     Dates: start: 20210922, end: 20220512
  15. PREDNISOLONE [Suspect]
     Active Substance: PREDNISOLONE
     Route: 048
  16. TACROLIMUS [Concomitant]
     Active Substance: TACROLIMUS
     Indication: Neuromyelitis optica spectrum disorder
     Dosage: 1 MILLIGRAM/DAY
     Route: 065
     Dates: start: 20201015, end: 20201028
  17. TACROLIMUS [Concomitant]
     Active Substance: TACROLIMUS
     Dosage: 3 MILLIGRAM/DAY
     Route: 065
     Dates: start: 20200305, end: 20200930
  18. TACROLIMUS [Concomitant]
     Active Substance: TACROLIMUS
     Dosage: 2 MILLIGRAM/DAY
     Route: 065
     Dates: start: 20201001, end: 20201014
  19. PREGABALIN [Concomitant]
     Active Substance: PREGABALIN
     Indication: Pain
     Dosage: 125MG/DAY
     Route: 065
  20. MIROGABALIN BESYLATE [Concomitant]
     Active Substance: MIROGABALIN BESYLATE
     Indication: Pain
     Dosage: 20MG/DAY
     Route: 050
     Dates: start: 20210128, end: 20210202
  21. MIROGABALIN BESYLATE [Concomitant]
     Active Substance: MIROGABALIN BESYLATE
     Dosage: 20MG/DAY
     Route: 065

REACTIONS (3)
  - Neuromyelitis optica spectrum disorder [Unknown]
  - Arthritis bacterial [Recovered/Resolved]
  - Cystitis [Recovered/Resolved]

NARRATIVE: CASE EVENT DATE: 20220126
